FAERS Safety Report 14505991 (Version 6)
Quarter: 2018Q2

REPORT INFORMATION
  Report Type: Report from Study
  Country: PE (occurrence: PE)
  Receive Date: 20180208
  Receipt Date: 20180503
  Transmission Date: 20180711
  Serious: Yes (Other)
  Sender: FDA-Public Use
  Company Number: PE-SA-2018SA029850

PATIENT
  Age: 32 Year
  Sex: Female

DRUGS (1)
  1. LEMTRADA [Suspect]
     Active Substance: ALEMTUZUMAB
     Indication: MULTIPLE SCLEROSIS
     Route: 041
     Dates: start: 20171019, end: 20171023

REACTIONS (16)
  - Blood bilirubin decreased [Not Recovered/Not Resolved]
  - Lymphocyte percentage decreased [Not Recovered/Not Resolved]
  - Klebsiella infection [Recovering/Resolving]
  - White blood cells urine positive [Not Recovered/Not Resolved]
  - Platelet count increased [Not Recovered/Not Resolved]
  - Culture urine positive [Recovering/Resolving]
  - Nitrite urine present [Unknown]
  - Urinary sediment present [Not Recovered/Not Resolved]
  - Blood urea decreased [Unknown]
  - Red blood cell sedimentation rate increased [Not Recovered/Not Resolved]
  - Blood bilirubin unconjugated decreased [Not Recovered/Not Resolved]
  - Anisocytosis [Recovering/Resolving]
  - Red cell distribution width increased [Not Recovered/Not Resolved]
  - Urobilinogen urine increased [Not Recovered/Not Resolved]
  - Vaginal infection [Recovering/Resolving]
  - Red cell distribution width increased [Not Recovered/Not Resolved]

NARRATIVE: CASE EVENT DATE: 20180123
